FAERS Safety Report 7666813-8 (Version None)
Quarter: 2011Q3

REPORT INFORMATION
  Report Type: 
  Country: None (occurrence: None)
  Receive Date: 20110806
  Receipt Date: 20110531
  Transmission Date: 20111222
  Serious: No
  Sender: FDA-Public Use
  Company Number: US-ABBOTT-11P-163-0730025-00

PATIENT
  Age: 89 Year
  Sex: Male
  Weight: 54.48 kg

DRUGS (2)
  1. LIPITOR [Concomitant]
     Indication: BLOOD CHOLESTEROL INCREASED
     Route: 048
  2. NIASPAN [Suspect]
     Indication: BLOOD CHOLESTEROL INCREASED
     Route: 048
     Dates: start: 20100201, end: 20110401

REACTIONS (5)
  - OEDEMA PERIPHERAL [None]
  - HYPOAESTHESIA [None]
  - FATIGUE [None]
  - STOMATITIS [None]
  - WEIGHT DECREASED [None]
